FAERS Safety Report 20304175 (Version 1)
Quarter: 2022Q1

REPORT INFORMATION
  Report Type: Spontaneous
  Country: US (occurrence: US)
  Receive Date: 20220106
  Receipt Date: 20220106
  Transmission Date: 20220423
  Serious: Yes (Other)
  Sender: FDA-Public Use
  Company Number: US-drreddys-LIT/USA/22/0145672

PATIENT
  Age: 82 Year
  Sex: Male

DRUGS (7)
  1. DIPHENHYDRAMINE HYDROCHLORIDE [Suspect]
     Active Substance: DIPHENHYDRAMINE HYDROCHLORIDE
     Indication: Pruritus
  2. DIPHENHYDRAMINE HYDROCHLORIDE [Suspect]
     Active Substance: DIPHENHYDRAMINE HYDROCHLORIDE
     Indication: Pemphigoid
  3. CLOBETASOL [Suspect]
     Active Substance: CLOBETASOL
     Indication: Pruritus
  4. CLOBETASOL [Suspect]
     Active Substance: CLOBETASOL
     Indication: Pemphigoid
  5. MYCOPHENOLATE MOFETIL [Concomitant]
     Active Substance: MYCOPHENOLATE MOFETIL
     Indication: Product used for unknown indication
  6. IPILIMUMAB [Concomitant]
     Active Substance: IPILIMUMAB
     Indication: Immunochemotherapy
     Dosage: DURING THE FIRST CYCLE ONLY BECAUSE OF A LACK OF AVAILABILITY AT THE PHARMACY.
     Route: 042
  7. NIVOLUMAB [Concomitant]
     Active Substance: NIVOLUMAB
     Indication: Immunochemotherapy
     Dosage: 4 CYCLES AS MAINTENANCE THERAPY
     Route: 042

REACTIONS (1)
  - Drug ineffective [Unknown]
